FAERS Safety Report 8577270-1 (Version None)
Quarter: 2012Q3

REPORT INFORMATION
  Report Type: 
  Country: None (occurrence: None)
  Receive Date: 20120807
  Receipt Date: 20120725
  Transmission Date: 20120928
  Serious: No
  Sender: FDA-Public Use
  Company Number: US-ASTRAZENECA-2010SE29369

PATIENT
  Age: 77 Year
  Sex: Female
  Weight: 59.9 kg

DRUGS (13)
  1. DIGOXIN [Concomitant]
  2. VICODIN [Concomitant]
  3. POTASSIUM [Concomitant]
  4. FLEXERIL [Concomitant]
  5. TRAZODONE HYDROCHLORIDE [Concomitant]
  6. LEVOTHYROXINE SODIUM [Concomitant]
  7. SINEMET [Concomitant]
  8. LABETALOL HCL [Concomitant]
  9. LOSARTAN/HYDROCHLORTHIAZIDE [Concomitant]
  10. ARIMIDEX [Suspect]
     Indication: NEOPLASM MALIGNANT
     Route: 048
     Dates: start: 20090101
  11. MIRTAZAPINE [Concomitant]
  12. PRILOSEC [Concomitant]
  13. GABAPENTIN [Concomitant]

REACTIONS (3)
  - DRUG DOSE OMISSION [None]
  - BACK INJURY [None]
  - HOT FLUSH [None]
